FAERS Safety Report 5135727-X (Version None)
Quarter: 2006Q4

REPORT INFORMATION
  Report Type: 
  Country: None (occurrence: None)
  Receive Date: 20061024
  Receipt Date: 20061024
  Transmission Date: 20070319
  Serious: No
  Sender: FDA-Public Use
  Company Number: None

PATIENT
  Age: 40 Year
  Sex: Female

DRUGS (1)
  1. LUPRON [Suspect]
     Indication: INFERTILITY

REACTIONS (5)
  - EMPTY SELLA SYNDROME [None]
  - GROWTH HORMONE DEFICIENCY [None]
  - HYPOTHYROIDISM [None]
  - PITUITARY HAEMORRHAGE [None]
  - SECONDARY HYPOGONADISM [None]
